FAERS Safety Report 8435479-1 (Version None)
Quarter: 2012Q2

REPORT INFORMATION
  Report Type: 
  Country: None (occurrence: None)
  Receive Date: 20120608
  Receipt Date: 20120523
  Transmission Date: 20120825
  Serious: Yes (Hospitalization)
  Sender: FDA-Public Use
  Company Number: ACO_30582_2012

PATIENT
  Age: 31 Year
  Sex: Male

DRUGS (5)
  1. TYSABRI (MATALIZUMAB) [Concomitant]
  2. TIZANIDINE HYDROCHLORIDE [Concomitant]
  3. REBIF [Concomitant]
  4. FAMPYRA (DALFAMPRIDINE) TABLET, 10MG [Suspect]
     Indication: WALKING DISABILITY
     Dosage: 10 MG, BID, ORAL
     Route: 048
     Dates: start: 20111215
  5. AVONEX [Concomitant]

REACTIONS (1)
  - SUBDURAL HYGROMA [None]
